FAERS Safety Report 13277847 (Version 4)
Quarter: 2017Q2

REPORT INFORMATION
  Report Type: Spontaneous
  Country: JP (occurrence: JP)
  Receive Date: 20170228
  Receipt Date: 20170411
  Transmission Date: 20170830
  Serious: Yes (Hospitalization, Other)
  Sender: FDA-Public Use
  Company Number: JP-JNJFOC-20170226000

PATIENT
  Age: 41 Year
  Sex: Male

DRUGS (3)
  1. REMICADE [Suspect]
     Active Substance: INFLIXIMAB
     Indication: CROHN^S DISEASE
     Route: 041
     Dates: start: 201411, end: 201411
  2. REMICADE [Suspect]
     Active Substance: INFLIXIMAB
     Indication: CROHN^S DISEASE
     Route: 041
     Dates: start: 20150707
  3. REMICADE [Suspect]
     Active Substance: INFLIXIMAB
     Indication: CROHN^S DISEASE
     Route: 041
     Dates: start: 201107

REACTIONS (2)
  - Bronchopulmonary aspergillosis [Recovering/Resolving]
  - Ileus [Recovered/Resolved]

NARRATIVE: CASE EVENT DATE: 20141117
